FAERS Safety Report 6644318-0 (Version None)
Quarter: 2010Q1

REPORT INFORMATION
  Report Type: 
  Country: None (occurrence: None)
  Receive Date: 20100304
  Receipt Date: 20090108
  Transmission Date: 20100710
  Serious: Yes (Life-Threatening)
  Sender: FDA-Public Use
  Company Number: US-002347

PATIENT
  Age: 43 Year
  Sex: Female
  Weight: 63 kg

DRUGS (7)
  1. ISOVUE-300 [Suspect]
     Indication: COMPUTERISED TOMOGRAM THORAX
     Dosage: 100ML QD
     Dates: start: 20081222, end: 20081222
  2. ISOVUE-300 [Suspect]
     Indication: DYSPNOEA
     Dosage: 100ML QD
     Dates: start: 20081222, end: 20081222
  3. ISOVUE-300 [Suspect]
     Indication: NECK PAIN
     Dosage: 100ML QD
     Dates: start: 20081222, end: 20081222
  4. CALCIUM (CALCIUM CARBONATE) [Concomitant]
  5. FEMARA [Concomitant]
  6. FOSAMAX [Concomitant]
  7. VICODIN [Concomitant]

REACTIONS (1)
  - ANAPHYLACTOID REACTION [None]
